FAERS Safety Report 7291979-1 (Version None)
Quarter: 2011Q1

REPORT INFORMATION
  Report Type: 
  Country: None (occurrence: None)
  Receive Date: 20110214
  Receipt Date: 20110201
  Transmission Date: 20110831
  Serious: Yes (Death)
  Sender: FDA-Public Use
  Company Number: FR-MYLANLABS-2011S1002054

PATIENT
  Age: 71 Year
  Sex: Male

DRUGS (5)
  1. ONDANSETRON [Suspect]
     Indication: SQUAMOUS CELL CARCINOMA
     Route: 042
     Dates: start: 20110125, end: 20110125
  2. SODIUM CHLORIDE [Suspect]
     Indication: PRODUCT USED FOR UNKNOWN INDICATION
     Route: 042
     Dates: start: 20110125, end: 20110125
  3. CISPLATIN [Suspect]
     Indication: SQUAMOUS CELL CARCINOMA
     Route: 042
     Dates: start: 20110125, end: 20110125
  4. APREPITANT [Suspect]
     Indication: PRODUCT USED FOR UNKNOWN INDICATION
     Route: 048
     Dates: start: 20110125, end: 20110125
  5. METHYLPREDNISOLONE [Suspect]
     Indication: SQUAMOUS CELL CARCINOMA
     Route: 042
     Dates: start: 20110125, end: 20110125

REACTIONS (1)
  - CARDIO-RESPIRATORY ARREST [None]
